FAERS Safety Report 23629004 (Version 1)
Quarter: 2024Q1

REPORT INFORMATION
  Report Type: Spontaneous
  Country: US (occurrence: US)
  Receive Date: 20240313
  Receipt Date: 20240313
  Transmission Date: 20240409
  Serious: Yes (Other)
  Sender: FDA-Public Use
  Company Number: US-002147023-NVSC2024US048921

PATIENT

DRUGS (3)
  1. LETROZOLE [Suspect]
     Active Substance: LETROZOLE
     Indication: Breast cancer metastatic
     Dosage: UNK
     Route: 065
  2. IBRANCE [Suspect]
     Active Substance: PALBOCICLIB
     Indication: Breast cancer metastatic
     Dosage: 100 MG, QD (WITH FOOD FOR 21 DAYS,SKIP 7 DAYS,THEN REPEA)
     Route: 048
  3. PALBOCICLIB [Suspect]
     Active Substance: PALBOCICLIB
     Indication: Breast cancer metastatic
     Dosage: 100 MG, QD (1 TAB DAILY FOR 3 WKS THEN 1 WK OFF.)
     Route: 048

REACTIONS (1)
  - Metastases to meninges [Unknown]

NARRATIVE: CASE EVENT DATE: 20170901
